FAERS Safety Report 22609201 (Version 1)
Quarter: 2023Q2

REPORT INFORMATION
  Report Type: Spontaneous
  Country: US (occurrence: None)
  Receive Date: 20230615
  Receipt Date: 20230615
  Transmission Date: 20230721
  Serious: Yes (Other)
  Sender: FDA-Public Use
  Company Number: None

PATIENT
  Age: 28 Year
  Sex: Female
  Weight: 71.1 kg

DRUGS (2)
  1. CAPLYTA [Suspect]
     Active Substance: LUMATEPERONE
     Indication: Bipolar disorder
     Dosage: OTHER QUANTITY : 1 CAPSULE(S);?FREQUENCY : AT BEDTIME;?
     Route: 048
     Dates: start: 20230614, end: 20230614
  2. CAPLYTA [Suspect]
     Active Substance: LUMATEPERONE
     Indication: Depression

REACTIONS (11)
  - Feeling of body temperature change [None]
  - Dry mouth [None]
  - Dizziness postural [None]
  - Discomfort [None]
  - Headache [None]
  - Decreased appetite [None]
  - Fatigue [None]
  - Hypersomnia [None]
  - Pollakiuria [None]
  - Nausea [None]
  - Dizziness [None]

NARRATIVE: CASE EVENT DATE: 20230615
